FAERS Safety Report 8387604-9 (Version None)
Quarter: 2012Q2

REPORT INFORMATION
  Report Type: 
  Country: None (occurrence: None)
  Receive Date: 20120525
  Receipt Date: 20120523
  Transmission Date: 20120825
  Serious: No
  Sender: FDA-Public Use
  Company Number: PHEH2012US010697

PATIENT
  Sex: Female

DRUGS (6)
  1. LASIX [Concomitant]
     Dosage: 40 MG, UNK
  2. LISINOPRIL [Concomitant]
     Dosage: 20 MG, UNK
  3. AMBIEN [Concomitant]
     Dosage: 5 MG, UNK
  4. SIMVASTATIN [Concomitant]
     Dosage: 40 MG, UNK
  5. PRILOSEC [Concomitant]
     Dosage: 40 MG, UNK
  6. TASIGNA [Suspect]
     Dosage: 150 MG, BID
     Route: 048

REACTIONS (3)
  - ABDOMINAL PAIN UPPER [None]
  - HAEMATURIA [None]
  - FLUID RETENTION [None]
